FAERS Safety Report 16277451 (Version 4)
Quarter: 2019Q2

REPORT INFORMATION
  Report Type: Report from Study
  Country: None (occurrence: AU)
  Receive Date: 20190506
  Receipt Date: 20190524
  Transmission Date: 20190711
  Serious: Yes (Death, Hospitalization)
  Sender: FDA-Public Use
  Company Number: AU-ABBVIE-19S-008-2753925-00

PATIENT
  Sex: Male

DRUGS (1)
  1. DUODOPA [Suspect]
     Active Substance: CARBIDOPA\LEVODOPA
     Indication: PARKINSON^S DISEASE
     Dosage: 100 ML GEL CASSETTE
     Route: 050
     Dates: start: 20180716, end: 20190419

REACTIONS (4)
  - Death [Fatal]
  - Stoma site inflammation [Unknown]
  - Pneumonia [Unknown]
  - Sepsis [Unknown]

NARRATIVE: CASE EVENT DATE: 2019
